FAERS Safety Report 8978237 (Version 1)
Quarter: 2012Q4

REPORT INFORMATION
  Report Type: 
  Country: US (occurrence: US)
  Receive Date: 20121220
  Receipt Date: 20121220
  Transmission Date: 20130627
  Serious: Yes (Hospitalization)
  Sender: FDA-Public Use
  Company Number: US-WATSON-2012-21988

PATIENT
  Age: 19 Year
  Sex: Female

DRUGS (3)
  1. ZOVIA 1/35E-28 [Suspect]
     Indication: CONTRACEPTION
     Dosage: 1 every day
     Route: 048
     Dates: start: 20120826, end: 20120830
  2. KELNOR 1/35 [Suspect]
     Indication: CONTRACEPTION
     Dosage: 1 every day
     Route: 048
     Dates: start: 20120831, end: 20120831
  3. KELNOR 1/35 [Suspect]
     Dosage: 1 every day
     Route: 048
     Dates: start: 201102, end: 20120825

REACTIONS (6)
  - Psychotic disorder [Not Recovered/Not Resolved]
  - Delusional disorder, unspecified type [Not Recovered/Not Resolved]
  - Paranoia [Not Recovered/Not Resolved]
  - Disorientation [Not Recovered/Not Resolved]
  - Fear [Not Recovered/Not Resolved]
  - Confusional state [Not Recovered/Not Resolved]
